FAERS Safety Report 17495214 (Version 3)
Quarter: 2020Q2

REPORT INFORMATION
  Report Type: Spontaneous
  Country: CH (occurrence: CH)
  Receive Date: 20200304
  Receipt Date: 20200521
  Transmission Date: 20200713
  Serious: Yes (Congenital Anomaly, Other)
  Sender: FDA-Public Use
  Company Number: NVSC2020CH058830

PATIENT

DRUGS (4)
  1. TIZANIDINE. [Suspect]
     Active Substance: TIZANIDINE
     Indication: FOETAL EXPOSURE DURING PREGNANCY
     Dosage: UNK UKN MATERNAL EXPOSURE DURING PREGNANCY (MATERNAL DOE: UNKNOWN)
     Route: 064
  2. FLUFENAMIC ACID [Suspect]
     Active Substance: FLUFENAMIC ACID
     Indication: FOETAL EXPOSURE DURING PREGNANCY
     Dosage: UNK UKN MATERNAL EXPOSURE DURING PREGNANCY (MATERNAL DOE: UNKNOWN)
     Route: 064
  3. DICLOFENAC [Suspect]
     Active Substance: DICLOFENAC
     Indication: FOETAL EXPOSURE DURING PREGNANCY
     Dosage: UNK UKN MATERNAL EXPOSURE DURING PREGNANCY (MATERNAL DOE: UNKNOWN)
     Route: 064
  4. PHENTERMINE. [Suspect]
     Active Substance: PHENTERMINE
     Indication: FOETAL EXPOSURE DURING PREGNANCY
     Dosage: UNK UKN MATERNAL EXPOSURE DURING PREGNANCY (MATERNAL DOE: UNKNOWN)
     Route: 064

REACTIONS (2)
  - Foetal exposure during pregnancy [Unknown]
  - Hypospadias [Unknown]
